FAERS Safety Report 18465343 (Version 1)
Quarter: 2020Q4

REPORT INFORMATION
  Report Type: Spontaneous
  Country: US (occurrence: US)
  Receive Date: 20201105
  Receipt Date: 20201105
  Transmission Date: 20210114
  Serious: Yes (Other)
  Sender: FDA-Public Use
  Company Number: US-GLENMARK PHARMACEUTICALS-2020GMK050247

PATIENT
  Age: 2 Year
  Sex: Male

DRUGS (7)
  1. GANCICLOVIR. [Concomitant]
     Active Substance: GANCICLOVIR
     Indication: CYTOMEGALOVIRUS INFECTION REACTIVATION
     Dosage: UNK
     Route: 065
  2. GRANULOCYTE COLONY STIMULATING FACTOR [Concomitant]
     Active Substance: GRANULOCYTE COLONY-STIMULATING FACTOR NOS
     Indication: PRODUCT USED FOR UNKNOWN INDICATION
     Dosage: 5 MICROGRAM/KILOGRAM, QD
     Route: 042
  3. CIDOFOVIR. [Concomitant]
     Active Substance: CIDOFOVIR
     Indication: ADENOVIRUS REACTIVATION
     Dosage: UNK
     Route: 065
  4. SIROLIMUS. [Suspect]
     Active Substance: SIROLIMUS
     Indication: PROPHYLAXIS AGAINST GRAFT VERSUS HOST DISEASE
     Dosage: 2 MG [}1.5 M2] OR 1 MG/M2 [LESS THAN OR EQUAL TO 1.5 M2], QD (STARTED ON DAY 5 POST TRANSPLANT)
     Route: 048
  5. CYCLOPHOSPHAMIDE. [Suspect]
     Active Substance: CYCLOPHOSPHAMIDE
     Indication: PROPHYLAXIS AGAINST GRAFT VERSUS HOST DISEASE
     Dosage: 50 MILLIGRAM/KILOGRAM, UNK (ON DAY 3 AND DAY 4 POST TRANSPLANT)
     Route: 042
  6. TACROLIMUS. [Suspect]
     Active Substance: TACROLIMUS
     Indication: PROPHYLAXIS AGAINST GRAFT VERSUS HOST DISEASE
     Dosage: UNK (STARTED ON DAY 5 POST TRANSPLANT)
     Route: 065
  7. MYCOPHENOLATE MOFETIL. [Suspect]
     Active Substance: MYCOPHENOLATE MOFETIL
     Indication: PROPHYLAXIS AGAINST GRAFT VERSUS HOST DISEASE
     Dosage: UNK (STARTED ON DAY 5 POST TRANSPLANT)
     Route: 065

REACTIONS (2)
  - Chronic graft versus host disease [Unknown]
  - Acute graft versus host disease [Unknown]
